FAERS Safety Report 9569550 (Version 2)
Quarter: 2013Q3

REPORT INFORMATION
  Report Type: Spontaneous
  Country: US (occurrence: US)
  Receive Date: 20130930
  Receipt Date: 20130930
  Transmission Date: 20140515
  Serious: No
  Sender: FDA-Public Use
  Company Number: US-AMGEN-USASP2013063897

PATIENT
  Age: 43 Year
  Sex: Female
  Weight: 79.37 kg

DRUGS (5)
  1. ENBREL [Suspect]
     Indication: PRODUCT USED FOR UNKNOWN INDICATION
     Dosage: 50 MG, 2 TIMES/WK
     Route: 058
  2. BENADRYL                           /00000402/ [Concomitant]
     Dosage: 25 MG, UNK
  3. ASPIRIN [Concomitant]
     Dosage: 325 MG, UNK
  4. KEFLEX                             /00145501/ [Concomitant]
     Dosage: 750 MG, UNK
  5. TRAMADOL HCL [Concomitant]
     Dosage: 200 MG, (ER) UNK

REACTIONS (2)
  - Localised infection [Unknown]
  - Psoriasis [Unknown]
